FAERS Safety Report 8403616 (Version 2)
Quarter: 2012Q4

REPORT INFORMATION
  Report Type: Report from Study
  Country: FR (occurrence: FR)
  Receive Date: 20120213
  Receipt Date: 20120905
  Transmission Date: 20130627
  Serious: Yes (Other)
  Sender: FDA-Public Use
  Company Number: FR-CELGENEUS-056-21880-12013176

PATIENT
  Age: 53 Year
  Sex: Male
  Weight: 86 kg

DRUGS (19)
  1. REVLIMID [Suspect]
     Indication: MULTIPLE MYELOMA
     Route: 048
     Dates: start: 20080408, end: 20080704
  2. REVLIMID [Suspect]
     Route: 048
     Dates: start: 20071115, end: 20080101
  3. PLACEBO [Suspect]
     Indication: MULTIPLE MYELOMA
     Route: 048
     Dates: start: 20080112, end: 20080402
  4. DEXAMETHASONE [Concomitant]
     Indication: MULTIPLE MYELOMA
     Route: 065
     Dates: start: 20080408, end: 20080704
  5. DEXAMETHASONE [Concomitant]
     Route: 065
     Dates: start: 20080707, end: 20081106
  6. DEXAMETHASONE [Concomitant]
     Route: 065
     Dates: start: 20081209, end: 20090401
  7. DEXAMETHASONE [Concomitant]
     Route: 065
     Dates: start: 20090420, end: 20090618
  8. DEXAMETHASONE [Concomitant]
     Route: 065
     Dates: start: 20091030, end: 20100810
  9. DEXAMETHASONE [Concomitant]
     Route: 065
  10. DELURSAN [Concomitant]
     Indication: DRUG USE FOR UNKNOWN INDICATION
     Route: 048
     Dates: start: 201009
  11. CORTANCYL [Concomitant]
     Indication: GVHD
     Route: 048
     Dates: start: 20101104
  12. ZELITREX [Concomitant]
     Indication: PROPHYLAXIS
     Route: 048
     Dates: start: 201009
  13. AMOXICILLIN [Concomitant]
     Indication: PROPHYLAXIS
     Route: 048
     Dates: start: 201009
  14. BACTRIM [Concomitant]
     Indication: PROPHYLAXIS
     Route: 048
     Dates: start: 201009
  15. LEDERFOLINE [Concomitant]
     Indication: PROPHYLAXIS
     Route: 048
     Dates: start: 201009
  16. MOPRAL [Concomitant]
     Indication: PROPHYLAXIS
     Route: 048
     Dates: start: 201009
  17. CALCI D3 [Concomitant]
     Indication: PROPHYLAXIS
     Route: 048
     Dates: start: 20110530
  18. VITAMIN B1 B6 [Concomitant]
     Indication: NEUROPATHY
     Route: 048
     Dates: start: 20110530
  19. DIPROSONE [Concomitant]
     Indication: GVHD
     Route: 061
     Dates: start: 201009

REACTIONS (1)
  - Keratoacanthoma [Recovered/Resolved]
